FAERS Safety Report 6065462-5 (Version None)
Quarter: 2009Q1

REPORT INFORMATION
  Report Type: 
  Country: None (occurrence: None)
  Receive Date: 20090204
  Receipt Date: 20090121
  Transmission Date: 20090719
  Serious: Yes (Death, Hospitalization)
  Sender: FDA-Public Use
  Company Number: US-JNJFOC-20090106934

PATIENT
  Sex: Male
  Weight: 44.45 kg

DRUGS (5)
  1. DURAGESIC-100 [Suspect]
     Indication: PAIN MANAGEMENT
     Route: 062
  2. MORPHINE SOLUTION [Concomitant]
     Indication: PAIN MANAGEMENT
     Route: 065
  3. DIPHENHYDRAMINE HCL [Concomitant]
  4. DEMEROL [Concomitant]
  5. ACETONE [Concomitant]

REACTIONS (2)
  - DRUG LEVEL INCREASED [None]
  - PROSTATE CANCER METASTATIC [None]
